FAERS Safety Report 6448918-2 (Version None)
Quarter: 2009Q4

REPORT INFORMATION
  Report Type: 
  Country: None (occurrence: None)
  Receive Date: 20091120
  Receipt Date: 20091113
  Transmission Date: 20100525
  Serious: Yes (Other)
  Sender: FDA-Public Use
  Company Number: B0606267A

PATIENT
  Sex: Female

DRUGS (2)
  1. NIQUITIN CQ CLEAR 14MG [Suspect]
     Indication: DRUG USE FOR UNKNOWN INDICATION
     Dosage: 14MG UNKNOWN
     Route: 062
  2. OTHER MEDICATIONS [Concomitant]

REACTIONS (1)
  - PSYCHOTIC DISORDER [None]
